FAERS Safety Report 5136424-7 (Version None)
Quarter: 2006Q4

REPORT INFORMATION
  Report Type: 
  Country: None (occurrence: None)
  Receive Date: 20061027
  Receipt Date: 20050908
  Transmission Date: 20070319
  Serious: No
  Sender: FDA-Public Use
  Company Number: US-BRISTOL-MYERS SQUIBB COMPANY-13104542

PATIENT
  Age: 52 Year
  Sex: Female

DRUGS (4)
  1. KENALOG-40 [Suspect]
     Indication: TENDONITIS
     Dates: start: 20050907
  2. NPH INSULIN [Concomitant]
     Dosage: DOSAGE: 6 UNITS IN THE MORNING, 10 UNITS AT DINNER
  3. HUMULIN R [Concomitant]
     Dosage: DOSAGE: 30 UNITS IN THE MORNING, 40 UNITS AT BEDTIME
  4. TIMOLOL MALEATE [Concomitant]
     Dosage: ONE DROP IN EACH EYE
     Route: 047

REACTIONS (1)
  - BLOOD GLUCOSE INCREASED [None]
